FAERS Safety Report 19974234 (Version 9)
Quarter: 2024Q1

REPORT INFORMATION
  Report Type: Spontaneous
  Country: US (occurrence: US)
  Receive Date: 20211020
  Receipt Date: 20240220
  Transmission Date: 20240410
  Serious: Yes (Hospitalization, Other)
  Sender: FDA-Public Use
  Company Number: US-PFIZER INC-202101361048

PATIENT
  Age: 63 Year
  Sex: Male
  Weight: 90.703 kg

DRUGS (9)
  1. INLYTA [Suspect]
     Active Substance: AXITINIB
     Indication: Renal cell carcinoma
     Dosage: 3 MG, 2X/DAY (WITH OR WITHOUT FOOD WITH A FULL GLASS OF WATER)
     Route: 048
     Dates: start: 20210415
  2. INLYTA [Suspect]
     Active Substance: AXITINIB
     Dosage: 2 DF, 2X/DAY
     Route: 048
     Dates: start: 202110
  3. INLYTA [Suspect]
     Active Substance: AXITINIB
     Dosage: 3 TABLETS TWICE DAILY WITH A FULL GLASS OF WATER
     Route: 048
  4. INLYTA [Suspect]
     Active Substance: AXITINIB
     Dosage: 2 PILLS IN THE MORNING AND 1 IN THE EVENING
     Dates: start: 20230816
  5. INLYTA [Suspect]
     Active Substance: AXITINIB
     Dosage: TAKE 3 TABLETS BY MOUTH 2 TIMES DAILY
     Route: 048
  6. MORPHINE [Concomitant]
     Active Substance: MORPHINE
     Dosage: 30 MG
  7. ASPIRIN [Concomitant]
     Active Substance: ASPIRIN
     Dosage: 81 MG
  8. LOSARTAN [Concomitant]
     Active Substance: LOSARTAN
     Dosage: 100 MG
  9. CARVEDILOL [Concomitant]
     Active Substance: CARVEDILOL
     Dosage: 25 MG

REACTIONS (7)
  - Cardiac failure [Unknown]
  - Decreased appetite [Unknown]
  - Hepatic enzyme abnormal [Unknown]
  - Back pain [Unknown]
  - Abdominal pain [Unknown]
  - Arthralgia [Unknown]
  - Somnolence [Unknown]

NARRATIVE: CASE EVENT DATE: 20210527
